FAERS Safety Report 16242135 (Version 1)
Quarter: 2019Q2

REPORT INFORMATION
  Report Type: Spontaneous
  Country: US (occurrence: US)
  Receive Date: 20190426
  Receipt Date: 20190426
  Transmission Date: 20190711
  Serious: Yes (Other)
  Sender: FDA-Public Use
  Company Number: US-ABBVIE-19S-163-2756522-00

PATIENT
  Sex: Female

DRUGS (1)
  1. SYNTHROID [Suspect]
     Active Substance: LEVOTHYROXINE SODIUM
     Indication: PRODUCT USED FOR UNKNOWN INDICATION
     Dosage: SHE HAD BEEN ON SYNTHROID FOR A FEW YEARS
     Route: 048

REACTIONS (6)
  - Hair disorder [Unknown]
  - Drug ineffective [Unknown]
  - Weight increased [Unknown]
  - Gastric bypass [Unknown]
  - Product residue present [Unknown]
  - Malabsorption [Unknown]
